FAERS Safety Report 22361783 (Version 2)
Quarter: 2024Q1

REPORT INFORMATION
  Report Type: Report from Study
  Country: GB (occurrence: GB)
  Receive Date: 20230524
  Receipt Date: 20240110
  Transmission Date: 20240410
  Serious: Yes (Hospitalization, Other)
  Sender: FDA-Public Use
  Company Number: GB-ROCHE-3349689

PATIENT
  Age: 81 Year
  Weight: 64.8 kg

DRUGS (14)
  1. VINCRISTINE SULFATE [Suspect]
     Active Substance: VINCRISTINE SULFATE
     Indication: Follicular lymphoma
     Dosage: MOST RECENT DOSE ADMINISTERED ON 14/MAR/2023
     Route: 065
     Dates: start: 20221121
  2. CYCLOPHOSPHAMIDE [Suspect]
     Active Substance: CYCLOPHOSPHAMIDE
     Indication: Follicular lymphoma
     Dosage: MOST RECENT DOSE ADMINISTERED ON 14/MAR/2023
     Route: 065
     Dates: start: 20221121
  3. OBINUTUZUMAB [Suspect]
     Active Substance: OBINUTUZUMAB
     Indication: Follicular lymphoma
     Dosage: CONCENTRATION- 25MG/ML. MOST RECENT DOSE ADMINISTERED ON 14/MAR/2023
     Route: 042
     Dates: start: 20221121
  4. PREDNISOLONE [Suspect]
     Active Substance: PREDNISOLONE
     Indication: Follicular lymphoma
     Dosage: MOST RECENT DOSE ADMINISTERED ON 14/MAR/2023
     Route: 065
     Dates: start: 20221121
  5. AMLODIPINE [Concomitant]
     Active Substance: AMLODIPINE BESYLATE
     Indication: Hypertension
     Dosage: 5 MG, 1X/DAY
     Route: 048
     Dates: start: 2002
  6. ATORVASTATIN [Concomitant]
     Active Substance: ATORVASTATIN
     Indication: Transient ischaemic attack
     Dosage: 80 MG, 1X/DAY
     Route: 048
     Dates: start: 202209
  7. CLOPIDOGREL [Concomitant]
     Active Substance: CLOPIDOGREL BISULFATE
     Indication: Transient ischaemic attack
     Dosage: 75 MG, 1X/DAY
     Route: 048
     Dates: start: 2022
  8. ENOPEN [Concomitant]
     Indication: Rash
     Dosage: 1 DF, 2X/DAY
     Route: 061
     Dates: start: 20221111
  9. GABAPENTIN [Concomitant]
     Active Substance: GABAPENTIN
     Indication: Spinal osteoarthritis
     Dosage: 600 MG, 2X/DAY
     Route: 048
     Dates: start: 2015
  10. MOMETASONE [Concomitant]
     Active Substance: MOMETASONE
     Indication: Rash
     Dosage: 1 DF, 1X/DAY
     Route: 061
     Dates: start: 20221111
  11. ACETAMINOPHEN [Concomitant]
     Active Substance: ACETAMINOPHEN
     Indication: Pain
     Dosage: 1000 MG
     Route: 048
     Dates: start: 20221110
  12. ALBUTEROL [Concomitant]
     Active Substance: ALBUTEROL
     Indication: Chronic obstructive pulmonary disease
     Dosage: 1 DF
     Route: 065
     Dates: start: 2017
  13. TAMSULOSIN [Concomitant]
     Active Substance: TAMSULOSIN
     Indication: Benign prostatic hyperplasia
     Dosage: 400 UG, 1X/DAY
     Route: 048
     Dates: start: 2014
  14. TIOTROPIUM BROMIDE [Concomitant]
     Active Substance: TIOTROPIUM BROMIDE
     Indication: Chronic obstructive pulmonary disease
     Dosage: UNK, 1X/DAY
     Route: 065
     Dates: start: 2002

REACTIONS (2)
  - Infection [Recovered/Resolved]
  - Urinary tract infection [Recovered/Resolved]

NARRATIVE: CASE EVENT DATE: 20230115
